FAERS Safety Report 8880744 (Version 1)
Quarter: 2012Q4

REPORT INFORMATION
  Report Type: 
  Country: FR (occurrence: FR)
  Receive Date: 20121101
  Receipt Date: 20121101
  Transmission Date: 20130627
  Serious: Yes (Hospitalization)
  Sender: FDA-Public Use
  Company Number: FR-GLAXOSMITHKLINE-B0475431A

PATIENT
  Age: 40 Year
  Sex: Female

DRUGS (3)
  1. MALARONE [Suspect]
     Indication: MALARIA PROPHYLAXIS
     Dosage: 1TAB Per day
     Route: 048
     Dates: start: 20061208, end: 20061218
  2. AUGMENTIN [Suspect]
     Route: 048
     Dates: start: 20061215, end: 20061218
  3. TELITHROMYCIN [Concomitant]
     Route: 065
     Dates: start: 20061218

REACTIONS (25)
  - Hypersensitivity [Recovered/Resolved]
  - Pulmonary eosinophilia [Recovered/Resolved]
  - Respiratory distress [Recovered/Resolved]
  - Urticaria [Recovered/Resolved]
  - Fatigue [Recovered/Resolved]
  - Hyperthermia [Recovered/Resolved]
  - Dyspnoea [Recovered/Resolved]
  - Cough [Recovered/Resolved]
  - Malaise [Recovered/Resolved]
  - Dyspnoea [Recovered/Resolved]
  - Pruritus [Recovered/Resolved]
  - Tachypnoea [Recovered/Resolved]
  - Rales [Recovered/Resolved]
  - Rales [Recovered/Resolved]
  - Eosinophil percentage abnormal [Recovered/Resolved]
  - C-reactive protein increased [Recovered/Resolved]
  - Pulmonary vasculitis [Recovered/Resolved]
  - Blood immunoglobulin E increased [Recovered/Resolved]
  - Chest X-ray abnormal [Recovered/Resolved]
  - Hypoxia [Recovered/Resolved]
  - Eosinophilic pneumonia acute [Unknown]
  - Rash [Unknown]
  - Rash maculo-papular [Unknown]
  - Tachypnoea [Unknown]
  - Rales [Unknown]
